FAERS Safety Report 10042789 (Version 1)
Quarter: 2014Q1

REPORT INFORMATION
  Report Type: Spontaneous
  Country: US (occurrence: US)
  Receive Date: 20140327
  Receipt Date: 20140327
  Transmission Date: 20141002
  Serious: Yes (Hospitalization, Other)
  Sender: FDA-Public Use
  Company Number: US-TEVA-471511USA

PATIENT
  Age: 39 Year
  Sex: Male

DRUGS (8)
  1. AZITHROMYCIN [Suspect]
     Indication: OPPORTUNISTIC INFECTION PROPHYLAXIS
     Route: 065
  2. ETHAMBUTOL [Suspect]
     Indication: OPPORTUNISTIC INFECTION PROPHYLAXIS
     Route: 065
  3. VALPROIC ACID [Suspect]
     Indication: CONVULSION
     Route: 065
  4. DAPSONE [Suspect]
     Indication: OPPORTUNISTIC INFECTION PROPHYLAXIS
     Route: 065
  5. TENOFOVIR [Concomitant]
     Indication: HIV INFECTION
     Route: 065
  6. EMTRICITABINE [Concomitant]
     Indication: HIV INFECTION
     Route: 065
  7. LOPINAVIR, RITONAVIR [Concomitant]
     Indication: HIV INFECTION
     Route: 065
  8. CEFEPIME [Concomitant]
     Indication: PNEUMONIA
     Route: 065

REACTIONS (1)
  - Vanishing bile duct syndrome [Unknown]
